FAERS Safety Report 9629570 (Version 2)
Quarter: 2013Q4

REPORT INFORMATION
  Report Type: Report from Study
  Country: JP (occurrence: JP)
  Receive Date: 20131017
  Receipt Date: 20131031
  Transmission Date: 20140711
  Serious: Yes (Hospitalization)
  Sender: FDA-Public Use
  Company Number: JP-UCBSA-100224

PATIENT
  Age: 79 Year
  Sex: Female

DRUGS (10)
  1. CIMZIA [Suspect]
     Indication: RHEUMATOID ARTHRITIS
     Dosage: 200 MG SYRINGE
     Route: 058
     Dates: start: 20130409
  2. CELECOX [Concomitant]
     Route: 048
  3. PRIMPERAN [Concomitant]
     Route: 048
     Dates: start: 20130610
  4. MUCOSTA [Concomitant]
     Route: 048
     Dates: start: 20130611
  5. TRAMCET [Concomitant]
     Route: 062
     Dates: start: 20130430
  6. PREDNISOLONE [Concomitant]
     Route: 062
     Dates: start: 20130712
  7. NABOAL [Concomitant]
  8. MOHRUS TAPE L [Concomitant]
  9. NOZLEN [Concomitant]
     Dosage: DAILY DOSE: 0.6G
     Route: 048
     Dates: start: 20120416
  10. HIBON [Concomitant]
     Dosage: DAILY DOSE: 20MG
     Route: 048
     Dates: start: 20120806

REACTIONS (2)
  - Pneumonia [Recovered/Resolved]
  - Pyelonephritis [Recovered/Resolved]
